FAERS Safety Report 19481061 (Version 1)
Quarter: 2021Q3

REPORT INFORMATION
  Report Type: Spontaneous
  Country: CN (occurrence: CN)
  Receive Date: 20210701
  Receipt Date: 20210701
  Transmission Date: 20211014
  Serious: Yes (Other)
  Sender: FDA-Public Use
  Company Number: CN-ROCHE-2859268

PATIENT
  Age: 67 Year
  Sex: Female

DRUGS (6)
  1. 5?FLUOROURACIL [Concomitant]
     Active Substance: FLUOROURACIL
     Indication: RECTAL CANCER
  2. XELODA [Suspect]
     Active Substance: CAPECITABINE
     Indication: RECTAL CANCER
     Dosage: CAPECITABINE MAINTENANCE CHEMOTHERAPY FOR 5 CYCLES
     Route: 048
  3. AVASTIN [Suspect]
     Active Substance: BEVACIZUMAB
     Indication: RECTAL CANCER
     Dosage: ON 28/NOV/2020, 19/DEC/2020, 31/JAN/2021, 21/FEB/2021, 14/MAR/2021, 18/APR/2021, 08/MAY/2021, 30/MAY
     Route: 065
  4. CALCIUM FOLINATE [Concomitant]
     Active Substance: LEUCOVORIN CALCIUM
     Indication: RECTAL CANCER
  5. TEGAFUR GIMERACIL AND OTERACIL POTASSIUM [Concomitant]
     Active Substance: GIMERACIL\OTERACIL\TEGAFUR
     Indication: RECTAL CANCER
     Dates: start: 20190428
  6. OXALIPLATIN. [Concomitant]
     Active Substance: OXALIPLATIN
     Indication: RECTAL CANCER

REACTIONS (1)
  - Myelosuppression [Unknown]

NARRATIVE: CASE EVENT DATE: 20190405
